FAERS Safety Report 6094016-X (Version None)
Quarter: 2009Q1

REPORT INFORMATION
  Report Type: 
  Country: None (occurrence: None)
  Receive Date: 20090224
  Receipt Date: 20090224
  Transmission Date: 20090719
  Serious: Yes (Hospitalization)
  Sender: FDA-Public Use
  Company Number: None

PATIENT
  Sex: Female
  Weight: 82.4 kg

DRUGS (2)
  1. BEVACIZUMAB LAST DOSE GIVEN 1236 MG [Suspect]
     Indication: RENAL CELL CARCINOMA
     Dosage: 15 MG/KG D1 Q 21 DAYS IV
     Route: 042
     Dates: start: 20080915
  2. BORTEZOMIB LAST DOSE GIVEN 3.3 MG [Suspect]
     Indication: RENAL CANCER
     Dosage: 1.8 MG/M2 D1 AND 8 Q 21 D IV
     Route: 042
     Dates: start: 20080922

REACTIONS (5)
  - CONTUSION [None]
  - FALL [None]
  - HAEMATOMA [None]
  - PAIN [None]
  - SKIN LACERATION [None]
